FAERS Safety Report 13353351 (Version 2)
Quarter: 2017Q4

REPORT INFORMATION
  Report Type: Spontaneous
  Country: US (occurrence: US)
  Receive Date: 20170321
  Receipt Date: 20171127
  Transmission Date: 20180320
  Serious: Yes (Other)
  Sender: FDA-Public Use
  Company Number: US-ASTRAZENECA-2017SE27156

PATIENT
  Age: 24767 Day
  Sex: Female
  Weight: 78.5 kg

DRUGS (20)
  1. GABAPENTIN. [Concomitant]
     Active Substance: GABAPENTIN
  2. BRILINTA [Concomitant]
     Active Substance: TICAGRELOR
  3. LANTUS SOLOSTAR [Concomitant]
     Active Substance: INSULIN GLARGINE
     Dosage: 1 OOUNIT/ML SOLUTION
  4. SINGULAIR [Concomitant]
     Active Substance: MONTELUKAST SODIUM
  5. ASPIRIN. [Concomitant]
     Active Substance: ASPIRIN
  6. CLOTRIMAZOLE. [Concomitant]
     Active Substance: CLOTRIMAZOLE
  7. AMLODIPINE [Concomitant]
     Active Substance: AMLODIPINE BESYLATE
  8. GLYBURIDE. [Concomitant]
     Active Substance: GLYBURIDE
  9. PRILOSEC [Suspect]
     Active Substance: OMEPRAZOLE MAGNESIUM
     Indication: GASTRIC PH DECREASED
     Route: 048
     Dates: start: 20140429
  10. FUROSEMIDE. [Concomitant]
     Active Substance: FUROSEMIDE
  11. PRILOSEC [Suspect]
     Active Substance: OMEPRAZOLE MAGNESIUM
     Indication: GASTRIC PH DECREASED
     Route: 048
     Dates: start: 20020923
  12. PRILOSEC [Suspect]
     Active Substance: OMEPRAZOLE MAGNESIUM
     Indication: GASTRIC PH DECREASED
     Route: 048
     Dates: start: 2000, end: 2014
  13. AMITIZA [Concomitant]
     Active Substance: LUBIPROSTONE
  14. FLUTICASONE PROPIONATE. [Concomitant]
     Active Substance: FLUTICASONE PROPIONATE
  15. OXYBUTYNIN CHLORIDE. [Concomitant]
     Active Substance: OXYBUTYNIN CHLORIDE
  16. GEMFIBROZIL. [Concomitant]
     Active Substance: GEMFIBROZIL
  17. CILOSTAZOL. [Concomitant]
     Active Substance: CILOSTAZOL
  18. KLOR-CON M20 [Concomitant]
     Active Substance: POTASSIUM CHLORIDE
  19. NOVOLIN R [Concomitant]
     Active Substance: INSULIN HUMAN
  20. PREDNISONE. [Concomitant]
     Active Substance: PREDNISONE
     Dosage: 10.0MG UNKNOWN

REACTIONS (6)
  - Renal failure [Unknown]
  - Hypertensive nephropathy [Unknown]
  - Chronic kidney disease [Unknown]
  - End stage renal disease [Unknown]
  - Acute kidney injury [Unknown]
  - Tubulointerstitial nephritis [Unknown]

NARRATIVE: CASE EVENT DATE: 20140429
